FAERS Safety Report 7530256-8 (Version None)
Quarter: 2011Q2

REPORT INFORMATION
  Report Type: 
  Country: None (occurrence: None)
  Receive Date: 20110606
  Receipt Date: 20110606
  Transmission Date: 20111010
  Serious: Yes (Other)
  Sender: FDA-Public Use
  Company Number: None

PATIENT
  Age: 76 Year
  Sex: Female
  Weight: 63.5036 kg

DRUGS (1)
  1. VICTOZA [Suspect]
     Indication: DIABETES MELLITUS
     Dosage: 1.8 MG DAILY A.M.
     Dates: start: 20110105, end: 20110319

REACTIONS (4)
  - ERYTHEMA [None]
  - DRUG HYPERSENSITIVITY [None]
  - PRURITUS [None]
  - RASH [None]
